FAERS Safety Report 9949228 (Version 1)
Quarter: 2014Q1

REPORT INFORMATION
  Report Type: Spontaneous
  Country: US (occurrence: None)
  Receive Date: 20140122
  Receipt Date: 20140122
  Transmission Date: 20141002
  Serious: No
  Sender: FDA-Public Use
  Company Number: AEGR000215

PATIENT
  Age: 51 Year
  Sex: Male
  Weight: 87.1 kg

DRUGS (5)
  1. JUXTAPID (LOMITAPIDE) CAPSULE, 5MG [Suspect]
     Indication: TYPE IIA HYPERLIPIDAEMIA
     Route: 048
     Dates: start: 201305, end: 2013
  2. CARVEDILOL (CARVEDILOL) [Concomitant]
  3. EFFIENT (PRASUGREL HYDROCHLORIDE) [Concomitant]
  4. ASPIRIN (ACETYLSALICYLIC ACID) [Concomitant]
  5. IBUPROFEN (IBUPROFEN SODIUM) [Concomitant]

REACTIONS (2)
  - Inappropriate schedule of drug administration [None]
  - Gastrointestinal disorder [None]
